FAERS Safety Report 5897678-2 (Version None)
Quarter: 2008Q3

REPORT INFORMATION
  Report Type: 
  Country: None (occurrence: None)
  Receive Date: 20080925
  Receipt Date: 20080916
  Transmission Date: 20090109
  Serious: Yes (Death, Hospitalization)
  Sender: FDA-Public Use
  Company Number: TR-AMGEN-US308408

PATIENT
  Sex: Male

DRUGS (4)
  1. ENBREL [Suspect]
     Indication: PSORIASIS
     Dosage: NOT SPECIFIED
     Route: 058
     Dates: start: 20050101, end: 20070101
  2. ENBREL [Suspect]
     Indication: PSORIATIC ARTHROPATHY
  3. REMICADE [Suspect]
     Indication: PSORIASIS
     Dosage: RECEIVED 3 DOSES PRIOR TO THE EVENT
     Route: 042
     Dates: start: 20080408, end: 20080714
  4. REMICADE [Suspect]
     Indication: PSORIATIC ARTHROPATHY

REACTIONS (3)
  - CARDIAC ARREST [None]
  - DRUG INEFFECTIVE [None]
  - TUBERCULOSIS [None]
